FAERS Safety Report 9752500 (Version 1)
Quarter: 2013Q4

REPORT INFORMATION
  Report Type: Spontaneous
  Country: US (occurrence: None)
  Receive Date: 20131211
  Receipt Date: 20131211
  Transmission Date: 20140711
  Serious: Yes (Life-Threatening)
  Sender: FDA-Public Use
  Company Number: None

PATIENT
  Age: 72 Year
  Sex: Male
  Weight: 89.5 kg

DRUGS (2)
  1. LISINOPRIL [Suspect]
     Indication: HYPERTENSION
     Route: 048
     Dates: start: 20050321, end: 20120807
  2. ONDANSETRON [Suspect]
     Indication: NAUSEA
     Route: 042
     Dates: start: 20120725, end: 20120725

REACTIONS (1)
  - Angioedema [None]
